FAERS Safety Report 10341723 (Version 2)
Quarter: 2014Q3

REPORT INFORMATION
  Report Type: Spontaneous
  Country: US (occurrence: None)
  Receive Date: 20140723
  Receipt Date: 20140825
  Transmission Date: 20150326
  Serious: Yes (Other)
  Sender: FDA-Public Use
  Company Number: UNT-2014-003850

PATIENT
  Age: 45 Year
  Sex: Female
  Weight: 56.7 kg

DRUGS (3)
  1. REMODULIN [Suspect]
     Active Substance: TREPROSTINIL
     Indication: PULMONARY ARTERIAL HYPERTENSION
     Route: 041
     Dates: start: 2014
  2. TRACLEER /01587701/ (BOSENTAN) [Concomitant]
  3. COUMADIN /00014802/ (WARFARIN SODIUM) [Concomitant]

REACTIONS (6)
  - Injection site pruritus [None]
  - Loss of consciousness [None]
  - Dizziness [None]
  - Feeling hot [None]
  - Syncope [None]
  - Injection site irritation [None]

NARRATIVE: CASE EVENT DATE: 20140708
